FAERS Safety Report 4749176-7 (Version None)
Quarter: 2005Q3

REPORT INFORMATION
  Report Type: 
  Country: None (occurrence: None)
  Receive Date: 20050817
  Receipt Date: 20050802
  Transmission Date: 20060218
  Serious: Yes (Life-Threatening, Hospitalization)
  Sender: FDA-Public Use
  Company Number: 2005FR-00212

PATIENT
  Age: 84 Year
  Sex: Female
  Weight: 60 kg

DRUGS (7)
  1. ACETAMINOPHEN [Suspect]
     Dates: start: 20050702
  2. DULOXETINE HYDROCHLORIDE [Concomitant]
  3. ATENOLOL [Concomitant]
  4. ASACOL [Concomitant]
  5. LACIDIPINE [Concomitant]
  6. TRAZODONE [Concomitant]
  7. SEROXAT [Concomitant]

REACTIONS (1)
  - OVERDOSE [None]
